FAERS Safety Report 25453929 (Version 1)
Quarter: 2025Q2

REPORT INFORMATION
  Report Type: Spontaneous
  Country: PL (occurrence: PL)
  Receive Date: 20250619
  Receipt Date: 20250619
  Transmission Date: 20250716
  Serious: Yes (Hospitalization, Other)
  Sender: AUROBINDO
  Company Number: PL-002147023-NVSC2025PL084553

PATIENT
  Age: 44 Year
  Sex: Male

DRUGS (6)
  1. DIMETHYL FUMARATE [Suspect]
     Active Substance: DIMETHYL FUMARATE
     Indication: Product used for unknown indication
     Route: 065
     Dates: start: 201910, end: 202108
  2. FINGOLIMOD [Suspect]
     Active Substance: FINGOLIMOD
     Indication: Relapsing-remitting multiple sclerosis
     Route: 065
     Dates: start: 201202
  3. FINGOLIMOD [Suspect]
     Active Substance: FINGOLIMOD
     Route: 065
     Dates: start: 201404
  4. FINGOLIMOD [Suspect]
     Active Substance: FINGOLIMOD
     Route: 065
     Dates: start: 201407
  5. KESIMPTA [Suspect]
     Active Substance: OFATUMUMAB
     Indication: Product used for unknown indication
     Route: 065
     Dates: start: 20221201
  6. GLATIRAMER ACETATE [Concomitant]
     Active Substance: GLATIRAMER ACETATE
     Indication: Product used for unknown indication
     Route: 065
     Dates: start: 201205

REACTIONS (20)
  - Balance disorder [Unknown]
  - Hypertonic bladder [Unknown]
  - Muscular weakness [Unknown]
  - Multiple sclerosis [Unknown]
  - Multiple sclerosis pseudo relapse [Unknown]
  - Multiple sclerosis relapse [Unknown]
  - Muscle strength abnormal [Unknown]
  - Optic neuritis [Unknown]
  - Paraparesis [Unknown]
  - Quadriparesis [Unknown]
  - Anal sphincter atony [Unknown]
  - Diplopia [Unknown]
  - Gastrointestinal disorder [Unknown]
  - General physical health deterioration [Unknown]
  - Visual acuity reduced [Unknown]
  - Malaise [Unknown]
  - Monoparesis [Unknown]
  - Nasopharyngitis [Unknown]
  - Paraesthesia [Unknown]
  - Peroneal nerve palsy [Unknown]

NARRATIVE: CASE EVENT DATE: 20120201
